FAERS Safety Report 24814532 (Version 1)
Quarter: 2025Q1

REPORT INFORMATION
  Report Type: Spontaneous
  Country: US (occurrence: US)
  Receive Date: 20250107
  Receipt Date: 20250107
  Transmission Date: 20250409
  Serious: Yes (Death, Hospitalization)
  Sender: MYLAN
  Company Number: US-MYLANLABS-2025M1000287

PATIENT
  Age: 61 Year
  Sex: Female

DRUGS (4)
  1. DOXORUBICIN [Suspect]
     Active Substance: DOXORUBICIN
     Indication: Fallopian tube cancer stage III
     Route: 065
     Dates: start: 202405
  2. PREDNISOLONE [Suspect]
     Active Substance: PREDNISOLONE
     Indication: Keratitis
     Route: 065
  3. CARBOPLATIN [Suspect]
     Active Substance: CARBOPLATIN
     Indication: Fallopian tube cancer stage III
     Route: 065
     Dates: start: 202405
  4. MIRVETUXIMAB SORAVTANSINE-GYNX [Concomitant]
     Active Substance: MIRVETUXIMAB SORAVTANSINE-GYNX
     Indication: Fallopian tube cancer stage III
     Route: 065

REACTIONS (1)
  - Drug ineffective [Fatal]
